FAERS Safety Report 14752318 (Version 1)
Quarter: 2018Q2

REPORT INFORMATION
  Report Type: Spontaneous
  Country: US (occurrence: US)
  Receive Date: 20180406
  Receipt Date: 20180406
  Transmission Date: 20180711
  Serious: No
  Sender: FDA-Public Use
  Company Number: None

PATIENT
  Age: 56 Year
  Sex: Female

DRUGS (1)
  1. SUTENT [Suspect]
     Active Substance: SUNITINIB MALATE
     Indication: METASTASES TO BONE
     Route: 048
     Dates: start: 20180320

REACTIONS (2)
  - Pyrexia [None]
  - Blood pressure increased [None]

NARRATIVE: CASE EVENT DATE: 20180406
